FAERS Safety Report 9603675 (Version 1)
Quarter: 2013Q4

REPORT INFORMATION
  Report Type: Spontaneous
  Country: DE (occurrence: DE)
  Receive Date: 20131007
  Receipt Date: 20131007
  Transmission Date: 20140711
  Serious: Yes (Death)
  Sender: FDA-Public Use
  Company Number: DE-FRI-1000048025

PATIENT
  Age: 76 Year
  Sex: Female

DRUGS (2)
  1. ROFLUMILAST [Suspect]
     Dates: start: 2013, end: 201308
  2. BRONCHODILATORS NOS [Concomitant]

REACTIONS (2)
  - Hepatic cancer [Fatal]
  - Hepatic cirrhosis [Fatal]
